FAERS Safety Report 8646045 (Version 10)
Quarter: 2017Q4

REPORT INFORMATION
  Report Type: Spontaneous
  Country: US (occurrence: US)
  Receive Date: 20120702
  Receipt Date: 20171213
  Transmission Date: 20180321
  Serious: Yes (Hospitalization, Disabling, Other)
  Sender: FDA-Public Use
  Company Number: US-009507513-1206USA04689

PATIENT
  Sex: Female
  Weight: 58.05 kg

DRUGS (11)
  1. FOSAMAX [Suspect]
     Active Substance: ALENDRONATE SODIUM
     Indication: OSTEOPOROSIS
     Dosage: UNK
     Route: 048
     Dates: start: 1999
  2. FOSAMAX [Suspect]
     Active Substance: ALENDRONATE SODIUM
     Indication: OSTEOPOROSIS
     Dosage: 70 MG, QW
     Route: 048
     Dates: start: 20011231, end: 2007
  3. BONIVA [Concomitant]
     Active Substance: IBANDRONATE SODIUM
     Indication: OSTEOPOROSIS
     Dosage: 150 MG, UNK
     Route: 048
     Dates: start: 20080821, end: 20091217
  4. VITAMIN E [Concomitant]
     Active Substance: .ALPHA.-TOCOPHEROL
     Dosage: UNK
     Dates: start: 1980
  5. FOSAMAX PLUS D [Suspect]
     Active Substance: ALENDRONATE SODIUM\CHOLECALCIFEROL
     Indication: OSTEOPOROSIS
     Dosage: 70MG/2800 UNITS, QW
     Route: 048
     Dates: start: 20070514, end: 20080630
  6. CALCIUM (UNSPECIFIED) [Concomitant]
     Active Substance: CALCIUM
     Dosage: UNK
     Dates: start: 1980
  7. OMEGA-3 MARINE TRIGLYCERIDES [Concomitant]
     Active Substance: FISH OIL
     Dosage: UNK
     Dates: start: 1980
  8. ALENDRONATE SODIUM. [Suspect]
     Active Substance: ALENDRONATE SODIUM
     Indication: OSTEOPOROSIS
     Dosage: 70 MG, QW
     Route: 048
     Dates: start: 20100913, end: 2011
  9. HORMONES (UNSPECIFIED) [Concomitant]
     Active Substance: UNSPECIFIED INGREDIENT
     Dosage: UNK
     Dates: start: 1999, end: 2008
  10. FOSAMAX [Suspect]
     Active Substance: ALENDRONATE SODIUM
     Indication: OSTEOPOROSIS
     Dosage: 10 MG, QD
     Route: 048
     Dates: start: 20010702, end: 20011230
  11. ALENDRONATE SODIUM. [Suspect]
     Active Substance: ALENDRONATE SODIUM
     Indication: OSTEOPOROSIS
     Dosage: 70 MG, QW
     Route: 048
     Dates: start: 20080513, end: 201009

REACTIONS (39)
  - Dental implantation [Unknown]
  - Blood cholesterol increased [Not Recovered/Not Resolved]
  - Bone scan abnormal [Unknown]
  - Coronary artery disease [Unknown]
  - Asthma [Unknown]
  - Femur fracture [Unknown]
  - Fracture delayed union [Unknown]
  - Road traffic accident [Unknown]
  - Aortic calcification [Unknown]
  - Nasal congestion [Unknown]
  - Pain in extremity [Unknown]
  - Cardiac murmur [Unknown]
  - Asthenia [Unknown]
  - Coagulopathy [Unknown]
  - Femur fracture [Recovered/Resolved]
  - Femur fracture [Recovered/Resolved]
  - Cerebral atrophy [Unknown]
  - Fatigue [Unknown]
  - Internal fixation of fracture [Recovered/Resolved]
  - Cardiac failure congestive [Unknown]
  - Hip fracture [Unknown]
  - Osteoporosis [Unknown]
  - Alopecia [Unknown]
  - Open reduction of fracture [Unknown]
  - Low turnover osteopathy [Unknown]
  - Foot fracture [Recovered/Resolved]
  - Tinnitus [Unknown]
  - Contusion [Unknown]
  - Headache [Unknown]
  - Hyperlipidaemia [Unknown]
  - Fall [Unknown]
  - Deafness [Unknown]
  - Spinal osteoarthritis [Unknown]
  - Atrial fibrillation [Not Recovered/Not Resolved]
  - Hypertension [Unknown]
  - Chest pain [Unknown]
  - Vertigo [Unknown]
  - Fall [Unknown]
  - Anaemia [Unknown]

NARRATIVE: CASE EVENT DATE: 2003
